FAERS Safety Report 11731622 (Version 1)
Quarter: 2015Q4

REPORT INFORMATION
  Report Type: Spontaneous
  Country: US (occurrence: US)
  Receive Date: 20151110
  Receipt Date: 20151110
  Transmission Date: 20160304
  Serious: No
  Sender: FDA-Public Use
  Company Number: US-ELI_LILLY_AND_COMPANY-US201203007076

PATIENT
  Sex: Male

DRUGS (1)
  1. FORTEO [Suspect]
     Active Substance: TERIPARATIDE
     Dosage: UNK, UNKNOWN
     Dates: start: 20120312

REACTIONS (9)
  - Retching [Unknown]
  - Intentional overdose [Unknown]
  - Abdominal pain upper [Unknown]
  - Feeding disorder [Unknown]
  - Abnormal faeces [Unknown]
  - Diverticulitis [Unknown]
  - Nausea [Unknown]
  - Faeces discoloured [Unknown]
  - Asthenia [Unknown]

NARRATIVE: CASE EVENT DATE: 20120315
